FAERS Safety Report 13261020 (Version 1)
Quarter: 2017Q1

REPORT INFORMATION
  Report Type: Spontaneous
  Country: CA (occurrence: CA)
  Receive Date: 20170222
  Receipt Date: 20170222
  Transmission Date: 20170428
  Serious: Yes (Life-Threatening, Hospitalization, Disabling)
  Sender: FDA-Public Use
  Company Number: CA-SA-2017SA026195

PATIENT
  Age: 63 Year
  Sex: Female
  Weight: 73 kg

DRUGS (8)
  1. LANTUS [Suspect]
     Active Substance: INSULIN GLARGINE
     Indication: TYPE 2 DIABETES MELLITUS
     Route: 058
  2. INVOKANA [Suspect]
     Active Substance: CANAGLIFLOZIN
     Indication: TYPE 2 DIABETES MELLITUS
     Route: 065
  3. ATORVASTATIN [Concomitant]
     Active Substance: ATORVASTATIN
  4. BETAHISTINE MESILATE [Concomitant]
     Active Substance: BETAHISTINE MESILATE
  5. OXYBUTYNIN HYDROCHLORIDE [Concomitant]
     Active Substance: OXYBUTYNIN CHLORIDE
  6. LIRAGLUTIDE [Suspect]
     Active Substance: LIRAGLUTIDE
     Route: 058
  7. LOSEC [Concomitant]
     Active Substance: OMEPRAZOLE
  8. INVOKANA [Suspect]
     Active Substance: CANAGLIFLOZIN
     Indication: TYPE 2 DIABETES MELLITUS
     Route: 065

REACTIONS (15)
  - Cognitive disorder [Recovered/Resolved]
  - Loss of consciousness [Recovered/Resolved]
  - Osmolar gap increased [Recovered/Resolved]
  - Posterior reversible encephalopathy syndrome [Recovered/Resolved]
  - Subdural haemorrhage [Recovered/Resolved]
  - Subarachnoid haemorrhage [Recovered/Resolved]
  - Acute kidney injury [Recovered/Resolved]
  - Diabetic ketoacidosis [Recovered/Resolved]
  - Pain [Recovered/Resolved]
  - Hypothermia [Recovered/Resolved]
  - Pyelonephritis [Recovered/Resolved]
  - Renal abscess [Recovered/Resolved]
  - Cerebrovascular accident [Recovered/Resolved]
  - Delirium [Recovered/Resolved]
  - Hypernatraemia [Recovered/Resolved]
